FAERS Safety Report 11825507 (Version 1)
Quarter: 2015Q4

REPORT INFORMATION
  Report Type: Spontaneous
  Country: US (occurrence: US)
  Receive Date: 20151211
  Receipt Date: 20151211
  Transmission Date: 20160305
  Serious: No
  Sender: FDA-Public Use
  Company Number: US-LUPIN PHARMACEUTICALS INC.-E2B_00004566

PATIENT
  Sex: Female
  Weight: 54 kg

DRUGS (2)
  1. LEVETIRACETAM TABLETS USP 500MG [Suspect]
     Active Substance: LEVETIRACETAM
     Route: 048
  2. LEVETIRACETAM TABLETS USP 500MG [Suspect]
     Active Substance: LEVETIRACETAM
     Indication: BRAIN ABSCESS
     Dosage: IN EVENING
     Route: 048

REACTIONS (3)
  - Feeling abnormal [Recovered/Resolved]
  - Reading disorder [Not Recovered/Not Resolved]
  - Somnolence [Not Recovered/Not Resolved]
